FAERS Safety Report 4991303-0 (Version None)
Quarter: 2006Q2

REPORT INFORMATION
  Report Type: 
  Country: None (occurrence: None)
  Receive Date: 20060428
  Receipt Date: 20060413
  Transmission Date: 20061013
  Serious: Yes (Other)
  Sender: FDA-Public Use
  Company Number: 2006S1003629

PATIENT
  Age: 8 Year
  Sex: Male

DRUGS (1)
  1. CYSTAGON [Suspect]
     Indication: CYSTINOSIS
     Dosage: ORAL
     Route: 048

REACTIONS (1)
  - VENOOCCLUSIVE LIVER DISEASE [None]
